FAERS Safety Report 9601618 (Version 3)
Quarter: 2014Q1

REPORT INFORMATION
  Report Type: Report from Study
  Country: BR (occurrence: BR)
  Receive Date: 20131007
  Receipt Date: 20140225
  Transmission Date: 20141002
  Serious: Yes (Other)
  Sender: FDA-Public Use
  Company Number: BR-ROCHE-1255712

PATIENT
  Sex: Male
  Weight: 70 kg

DRUGS (3)
  1. PEG-INTERFERON ALFA 2A [Suspect]
     Indication: HEPATITIS C
     Route: 065
     Dates: start: 20070101, end: 20080312
  2. RIBAVIRIN [Suspect]
     Indication: HEPATITIS C
     Route: 065
     Dates: start: 20070101, end: 20080312
  3. PROPRANOLOL [Concomitant]
     Route: 065

REACTIONS (2)
  - Drug ineffective [Unknown]
  - Viral load increased [Unknown]
